FAERS Safety Report 10050278 (Version 1)
Quarter: 2014Q2

REPORT INFORMATION
  Report Type: Spontaneous
  Country: BR (occurrence: BR)
  Receive Date: 20140401
  Receipt Date: 20140401
  Transmission Date: 20141212
  Serious: Yes (Other)
  Sender: FDA-Public Use
  Company Number: PHHY2014BR035696

PATIENT
  Age: 53 Year
  Sex: Female
  Weight: 86 kg

DRUGS (4)
  1. SINVASTATINA BIOCHEMIE [Suspect]
     Indication: BLOOD CHOLESTEROL INCREASED
     Dosage: 20 MG, QD
     Route: 048
     Dates: start: 20140301, end: 20140312
  2. CAPTOPRIL [Concomitant]
     Indication: HYPERTENSION
     Dosage: 25 MG, QD
     Route: 048
  3. AMLODIPINE [Concomitant]
     Indication: HYPERTENSION
     Dosage: 5 MG, QD
     Route: 048
  4. PROPRANOLOL [Concomitant]
     Indication: ARRHYTHMIA
     Dosage: 40 MG, QD
     Route: 048

REACTIONS (7)
  - Heart rate increased [Recovered/Resolved]
  - Dysgeusia [Recovered/Resolved]
  - Hyperhidrosis [Recovered/Resolved]
  - Dizziness [Recovered/Resolved]
  - Headache [Recovered/Resolved]
  - Asthenia [Recovered/Resolved]
  - Diarrhoea [Recovered/Resolved]
